FAERS Safety Report 12545408 (Version 1)
Quarter: 2016Q3

REPORT INFORMATION
  Report Type: Spontaneous
  Country: JP (occurrence: JP)
  Receive Date: 20160711
  Receipt Date: 20160711
  Transmission Date: 20161109
  Serious: Yes (Death, Other)
  Sender: FDA-Public Use
  Company Number: JP-PFIZER INC-2016285719

PATIENT

DRUGS (2)
  1. VFEND [Suspect]
     Active Substance: VORICONAZOLE
     Dosage: AT LOADING DOSE (UNSPECIFIED)
  2. VFEND [Suspect]
     Active Substance: VORICONAZOLE
     Dosage: 100 MG, UNK

REACTIONS (3)
  - Hallucination [Unknown]
  - Hallucination, auditory [Unknown]
  - Condition aggravated [Fatal]
